FAERS Safety Report 9432840 (Version 2)
Quarter: 2013Q3

REPORT INFORMATION
  Report Type: Spontaneous
  Country: US (occurrence: US)
  Receive Date: 20130731
  Receipt Date: 20130731
  Transmission Date: 20140515
  Serious: No
  Sender: FDA-Public Use
  Company Number: US-009507513-1307USA016999

PATIENT
  Sex: Female
  Weight: 56.69 kg

DRUGS (4)
  1. CLARITIN [Suspect]
     Indication: EYE OPERATION
     Dosage: 10 MG, QD
     Route: 048
  2. CLARITIN [Suspect]
     Indication: MEDICAL OBSERVATION
  3. CLARITIN [Suspect]
     Indication: EYE PRURITUS
  4. CLARITIN [Suspect]
     Indication: LACRIMATION INCREASED

REACTIONS (3)
  - Lacrimation increased [Not Recovered/Not Resolved]
  - Off label use [Unknown]
  - Drug effect decreased [Unknown]
